FAERS Safety Report 4942664-X (Version None)
Quarter: 2006Q1

REPORT INFORMATION
  Report Type: 
  Country: None (occurrence: None)
  Receive Date: 20060309
  Receipt Date: 20060224
  Transmission Date: 20060701
  Serious: Yes (Other)
  Sender: FDA-Public Use
  Company Number: 2006023355

PATIENT
  Age: 59 Year
  Sex: Male

DRUGS (4)
  1. ALDACTONE [Suspect]
     Indication: ASCITES
     Dosage: ORAL
     Route: 048
  2. LOXONIN (LOXOPROFEN SODIUM) [Suspect]
     Indication: PAIN
     Dosage: ORAL
     Route: 048
  3. MINOCYCLINE HCL [Suspect]
     Indication: ILL-DEFINED DISORDER
     Dosage: ORAL
     Route: 048
  4. LASIX [Concomitant]

REACTIONS (1)
  - PANCYTOPENIA [None]
